FAERS Safety Report 7388324-X (Version None)
Quarter: 2011Q2

REPORT INFORMATION
  Report Type: 
  Country: None (occurrence: None)
  Receive Date: 20110401
  Receipt Date: 20110322
  Transmission Date: 20111010
  Serious: Yes (Other)
  Sender: FDA-Public Use
  Company Number: US-TEVA-272626USA

PATIENT
  Sex: Female

DRUGS (9)
  1. ESTRADIOL [Suspect]
  2. ESTROGENS CONJUGATED [Suspect]
  3. ESTROGENIC SUBSTANCE [Suspect]
  4. ESTRADIOL [Suspect]
     Route: 062
  5. ESTRADIOL [Suspect]
  6. AYGESTIN TABLET 5MG, NORETHINDRONE ACETATE [Suspect]
  7. ESTRADIOL [Suspect]
     Route: 062
  8. PROGESTERONE [Suspect]
  9. PROVELLA-14 [Suspect]

REACTIONS (1)
  - BREAST CANCER [None]
